FAERS Safety Report 8889995 (Version 1)
Quarter: 2012Q4

REPORT INFORMATION
  Report Type: 
  Country: US (occurrence: US)
  Receive Date: 20121107
  Receipt Date: 20121107
  Transmission Date: 20130627
  Serious: Yes (Other)
  Sender: FDA-Public Use
  Company Number: PHHY2012US101228

PATIENT
  Age: 31 Year
  Sex: Male

DRUGS (10)
  1. GILENYA [Suspect]
     Indication: MULTIPLE SCLEROSIS
     Dosage: 0.5 mg, daily
     Route: 048
     Dates: start: 20110414
  2. CLARITIN [Concomitant]
     Dosage: 10 mg, daily
     Route: 048
     Dates: start: 20110724
  3. MOBIC [Concomitant]
     Dosage: 15 mg, daily
     Route: 048
     Dates: start: 20110724
  4. PRILOSEC [Concomitant]
     Dosage: 40 mg, daily
     Route: 048
     Dates: start: 20110724
  5. IMITREX [Concomitant]
     Dosage: 6 mg, daily
     Route: 058
     Dates: start: 20110724
  6. AMBIEN [Concomitant]
     Dosage: 10 mg, PRN (at bed time)
     Route: 048
     Dates: start: 20110724
  7. NUVIGIL [Concomitant]
     Dosage: 150 mg, PRN
     Route: 048
     Dates: start: 20111210
  8. LYRICA [Concomitant]
     Dosage: 300 mg, BID
     Route: 048
  9. IBUPROFEN [Concomitant]
     Dosage: 800 mg, Q4-6hours, PRN
     Route: 048
     Dates: start: 20111211
  10. TYLENOL EXTRA-STRENGTH [Concomitant]
     Dosage: 1000 mg, (Q4-6H, PRN)
     Route: 048
     Dates: start: 20111211

REACTIONS (8)
  - Post procedural haemorrhage [Unknown]
  - Wound complication [Unknown]
  - Blood pressure increased [Unknown]
  - Pyrexia [Unknown]
  - Haemoglobin decreased [Unknown]
  - Haematocrit decreased [Unknown]
  - Neutrophil percentage increased [Unknown]
  - Lymphocyte count decreased [Unknown]
